APPROVED DRUG PRODUCT: EMTRICITABINE AND TENOFOVIR DISOPROXIL FUMARATE
Active Ingredient: EMTRICITABINE; TENOFOVIR DISOPROXIL FUMARATE
Strength: 167MG;250MG
Dosage Form/Route: TABLET;ORAL
Application: A211640 | Product #003 | TE Code: AB
Applicant: AUROBINDO PHARMA LTD
Approved: Mar 9, 2023 | RLD: No | RS: No | Type: RX